FAERS Safety Report 6054023-X (Version None)
Quarter: 2009Q1

REPORT INFORMATION
  Report Type: 
  Country: None (occurrence: None)
  Receive Date: 20090123
  Receipt Date: 20090123
  Transmission Date: 20090719
  Serious: Yes (Hospitalization)
  Sender: FDA-Public Use
  Company Number: None

PATIENT
  Age: 39 Year
  Sex: Male
  Weight: 81.6475 kg

DRUGS (2)
  1. SUBOXONE [Suspect]
     Dosage: 4 TABS UNDER TONGUE DAILY SL
     Route: 060
  2. KLONOPIN [Suspect]
     Dosage: 1 TABLET IN AM AND 1 TAB PM TWICE PO
     Route: 048

REACTIONS (4)
  - DEPRESSION [None]
  - DRUG DEPENDENCE [None]
  - PARANOIA [None]
  - SUICIDAL IDEATION [None]
